FAERS Safety Report 8183943-5 (Version None)
Quarter: 2012Q1

REPORT INFORMATION
  Report Type: 
  Country: None (occurrence: None)
  Receive Date: 20120305
  Receipt Date: 20120302
  Transmission Date: 20120608
  Serious: No
  Sender: FDA-Public Use
  Company Number: US-PFIZER INC-2012056987

PATIENT
  Sex: Female
  Weight: 51.7 kg

DRUGS (1)
  1. ADVIL PM [Suspect]
     Indication: PAIN
     Dosage: 200 MG, UNK
     Route: 048
     Dates: start: 20120229, end: 20120229

REACTIONS (1)
  - DRUG INEFFECTIVE [None]
